FAERS Safety Report 9907938 (Version 1)
Quarter: 2014Q1

REPORT INFORMATION
  Report Type: Spontaneous
  Country: US (occurrence: US)
  Receive Date: 20140219
  Receipt Date: 20140219
  Transmission Date: 20141002
  Serious: Yes (Other)
  Sender: FDA-Public Use
  Company Number: US-AMGEN-USASP2014010665

PATIENT
  Sex: Female

DRUGS (2)
  1. XGEVA [Suspect]
     Indication: BREAST CANCER METASTATIC
     Dosage: UNK
     Route: 065
  2. XGEVA [Suspect]
     Indication: METASTASES TO BONE

REACTIONS (1)
  - Spinal decompression [Unknown]
